FAERS Safety Report 23068522 (Version 1)
Quarter: 2023Q4

REPORT INFORMATION
  Report Type: Spontaneous
  Country: US (occurrence: None)
  Receive Date: 20231013
  Receipt Date: 20231013
  Transmission Date: 20240110
  Serious: Yes (Death, Life-Threatening, Hospitalization, Disabling, Other)
  Sender: FDA-Public Use
  Company Number: None

PATIENT
  Age: 74 Year
  Sex: Male
  Weight: 51.75 kg

DRUGS (1)
  1. OFEV [Suspect]
     Active Substance: NINTEDANIB
     Indication: Pulmonary fibrosis
     Dosage: OTHER QUANTITY : 1 CAPSULE(S);?FREQUENCY : EVERY 12 HOURS;?
     Route: 048
     Dates: start: 20220109, end: 20220404

REACTIONS (9)
  - Anxiety [None]
  - Depression [None]
  - Paranoia [None]
  - Therapy cessation [None]
  - Pulmonary fibrosis [None]
  - Interstitial lung disease [None]
  - Pneumonia [None]
  - Arteriosclerosis [None]
  - Drug interaction [None]

NARRATIVE: CASE EVENT DATE: 20220114
